FAERS Safety Report 16092583 (Version 3)
Quarter: 2019Q2

REPORT INFORMATION
  Report Type: Spontaneous
  Country: HK (occurrence: HK)
  Receive Date: 20190319
  Receipt Date: 20190430
  Transmission Date: 20190711
  Serious: Yes (Hospitalization, Other)
  Sender: FDA-Public Use
  Company Number: PHHY2019HK060723

PATIENT
  Sex: Male

DRUGS (3)
  1. CURAM [Suspect]
     Active Substance: AMOXICILLIN\CLAVULANATE POTASSIUM
     Indication: INFECTION
     Dosage: 1 G, BID (TAKEN 1 TABLET AT 10:30PM)
     Route: 048
     Dates: start: 20190311, end: 20190311
  2. NEXIUM [Concomitant]
     Active Substance: ESOMEPRAZOLE MAGNESIUM
     Indication: PRODUCT USED FOR UNKNOWN INDICATION
     Dosage: 20 MG, QD
     Route: 065
  3. ARCOXIA [Concomitant]
     Active Substance: ETORICOXIB
     Indication: PRODUCT USED FOR UNKNOWN INDICATION
     Dosage: 60 MG, QD
     Route: 065

REACTIONS (8)
  - Asphyxia [Recovered/Resolved]
  - Laryngeal oedema [Recovering/Resolving]
  - Tongue oedema [Recovering/Resolving]
  - Oral mucosal erythema [Unknown]
  - Speech disorder [Unknown]
  - Product quality issue [Unknown]
  - Mouth swelling [Unknown]
  - Lip oedema [Recovering/Resolving]

NARRATIVE: CASE EVENT DATE: 20190312
